FAERS Safety Report 8600738-6 (Version None)
Quarter: 2012Q3

REPORT INFORMATION
  Report Type: 
  Country: None (occurrence: None)
  Receive Date: 20120817
  Receipt Date: 20120810
  Transmission Date: 20120928
  Serious: Yes (Other)
  Sender: FDA-Public Use
  Company Number: CA-AMGEN-CANSP2012051043

PATIENT
  Age: 85 Year
  Sex: Female
  Weight: 48.073 kg

DRUGS (9)
  1. DETROL LA [Concomitant]
  2. VITAMIN D [Concomitant]
  3. LEVOTHYROXINE SODIUM [Concomitant]
  4. PANTOPRAZOLE SODIUM [Concomitant]
  5. PLAVIX [Concomitant]
  6. EBIXA [Concomitant]
  7. PROLIA [Suspect]
     Indication: PRODUCT USED FOR UNKNOWN INDICATION
     Dosage: 60 MG, UNK
     Route: 058
  8. KEFLEX [Concomitant]
  9. TYLENOL W/ CODEINE NO. 2 [Concomitant]

REACTIONS (1)
  - RASH [None]
